FAERS Safety Report 18792058 (Version 1)
Quarter: 2021Q1

REPORT INFORMATION
  Report Type: Spontaneous
  Country: CN (occurrence: CN)
  Receive Date: 20210126
  Receipt Date: 20210126
  Transmission Date: 20210419
  Serious: Yes (Other)
  Sender: FDA-Public Use
  Company Number: CN-ROCHE-2756658

PATIENT
  Age: 62 Year
  Sex: Female

DRUGS (10)
  1. ETOPOSIDE. [Concomitant]
     Active Substance: ETOPOSIDE
     Route: 041
     Dates: start: 20201019
  2. TECENTRIQ [Suspect]
     Active Substance: ATEZOLIZUMAB
     Indication: LUNG NEOPLASM MALIGNANT
     Route: 041
     Dates: start: 20200901
  3. ETOPOSIDE. [Concomitant]
     Active Substance: ETOPOSIDE
     Route: 041
     Dates: start: 20201113
  4. CARBOPLATIN. [Concomitant]
     Active Substance: CARBOPLATIN
     Route: 041
     Dates: start: 20201017
  5. ETOPOSIDE. [Concomitant]
     Active Substance: ETOPOSIDE
     Indication: LUNG NEOPLASM MALIGNANT
     Route: 041
     Dates: start: 20200901
  6. CARBOPLATIN. [Concomitant]
     Active Substance: CARBOPLATIN
     Indication: LUNG NEOPLASM MALIGNANT
     Route: 041
     Dates: start: 20200901
  7. CARBOPLATIN. [Concomitant]
     Active Substance: CARBOPLATIN
     Route: 041
     Dates: start: 20201110
  8. ETOPOSIDE. [Concomitant]
     Active Substance: ETOPOSIDE
     Route: 041
     Dates: start: 20200904
  9. ETOPOSIDE. [Concomitant]
     Active Substance: ETOPOSIDE
     Route: 041
     Dates: start: 20201017
  10. ETOPOSIDE. [Concomitant]
     Active Substance: ETOPOSIDE
     Route: 041
     Dates: start: 20201110

REACTIONS (3)
  - Myelosuppression [Unknown]
  - Gastrointestinal disorder [Unknown]
  - Rash [Unknown]
